FAERS Safety Report 12642116 (Version 1)
Quarter: 2016Q3

REPORT INFORMATION
  Report Type: Spontaneous
  Country: FR (occurrence: FR)
  Receive Date: 20160810
  Receipt Date: 20160810
  Transmission Date: 20161109
  Serious: Yes (Hospitalization)
  Sender: FDA-Public Use
  Company Number: FR-JNJFOC-20160800202

PATIENT
  Age: 80 Year
  Sex: Male

DRUGS (20)
  1. OXYNORM [Suspect]
     Active Substance: OXYCODONE HYDROCHLORIDE
     Indication: PAIN
     Dosage: EVERY 4H IF IN PAIN (4 TABLETS TAKEN SINCE 24-MAY-2016)
     Route: 048
     Dates: start: 20160524, end: 20160527
  2. GELOX [Concomitant]
     Active Substance: ALUMINUM HYDROXIDE\MAGNESIUM HYDROXIDE\MONTMORILLONITE
     Indication: NEOPLASM MALIGNANT
     Dosage: 1-1-1: 5 DAYS A MONTH
     Route: 065
  3. SIMVASTATIN. [Concomitant]
     Active Substance: SIMVASTATIN
     Indication: PRODUCT USED FOR UNKNOWN INDICATION
     Dosage: 20 (UNSPECIFIED UNITS): 0-0-1
     Route: 065
  4. DUROGESIC [Suspect]
     Active Substance: FENTANYL
     Indication: PAIN
     Route: 062
     Dates: start: 20160524, end: 201605
  5. ZYLORIC [Concomitant]
     Active Substance: ALLOPURINOL
     Indication: NEOPLASM MALIGNANT
     Dosage: 5 DAYS PER MONTH
     Route: 065
  6. CORTANCYL [Concomitant]
     Active Substance: PREDNISONE
     Indication: NEOPLASM MALIGNANT
     Dosage: 1-1-0: 5 DAYS A MONTH
     Route: 065
  7. LAROXYL [Concomitant]
     Active Substance: AMITRIPTYLINE
     Indication: PRODUCT USED FOR UNKNOWN INDICATION
     Dosage: 40 (UNSPECIFIED UNITS): 10 DROPS AT BEDTIME
     Route: 065
  8. XANAX [Concomitant]
     Active Substance: ALPRAZOLAM
     Indication: PRODUCT USED FOR UNKNOWN INDICATION
     Dosage: 0.25 (UNSPECIFIED UNITS): 0-0-1
     Route: 065
  9. EPINITRIL [Concomitant]
     Active Substance: NITROGLYCERIN
     Indication: PRODUCT USED FOR UNKNOWN INDICATION
     Dosage: 5 (UNSPECIFIED UNITS): 1-0-0
     Route: 065
  10. ENDOXAN [Concomitant]
     Active Substance: CYCLOPHOSPHAMIDE
     Indication: NEOPLASM MALIGNANT
     Dosage: 50MG: 5-0-0: 3 DAYS A MONTH
     Route: 065
     Dates: start: 20160518
  11. DIFFU K [Concomitant]
     Active Substance: POTASSIUM CHLORIDE
     Indication: NEOPLASM MALIGNANT
     Dosage: 1-0-1: 5 DAYS A MONTH
     Route: 065
  12. CELLTOP [Concomitant]
     Active Substance: ETOPOSIDE
     Indication: NEOPLASM MALIGNANT
     Dosage: 50MG: 0-3-0: 3 DAYS A MONTH
     Route: 065
     Dates: start: 20160518
  13. PRIMPERAN [Concomitant]
     Active Substance: METOCLOPRAMIDE HYDROCHLORIDE
     Indication: NEOPLASM MALIGNANT
     Dosage: 1-1-1: 5 DAYS A MONTH
     Route: 065
  14. LERCANIDIPINE [Concomitant]
     Active Substance: LERCANIDIPINE
     Indication: PRODUCT USED FOR UNKNOWN INDICATION
     Dosage: 20 (UNSPECIFIED UNITS): 0-0-1
     Route: 065
  15. BECOTIDE [Concomitant]
     Active Substance: BECLOMETHASONE DIPROPIONATE
     Indication: PRODUCT USED FOR UNKNOWN INDICATION
     Dosage: 250 (UNSPECIFIED UNITS): 2-0-2
     Route: 065
  16. DUROGESIC [Suspect]
     Active Substance: FENTANYL
     Indication: PAIN
     Route: 062
  17. MECIR [Concomitant]
     Active Substance: TAMSULOSIN HYDROCHLORIDE
     Indication: PRODUCT USED FOR UNKNOWN INDICATION
     Dosage: 0.4 (UNSPECIFIED UNITS): 0-0-1
     Route: 065
  18. FORLAX [Concomitant]
     Active Substance: POLYETHYLENE GLYCOL 4000
     Indication: NEOPLASM MALIGNANT
     Route: 065
     Dates: end: 20160619
  19. APROVEL [Concomitant]
     Active Substance: IRBESARTAN
     Indication: PRODUCT USED FOR UNKNOWN INDICATION
     Dosage: 300 (UNSPECIFIED UNITS): 1-0-0
     Route: 065
  20. PARIET [Concomitant]
     Active Substance: RABEPRAZOLE SODIUM
     Indication: PRODUCT USED FOR UNKNOWN INDICATION
     Dosage: 20 (UNSPECIFIED UNITS): 0-0-1
     Route: 065

REACTIONS (5)
  - Blood creatinine increased [Recovering/Resolving]
  - Fall [Unknown]
  - Confusional state [Recovered/Resolved]
  - Urinary retention [Recovered/Resolved]
  - General physical health deterioration [Unknown]

NARRATIVE: CASE EVENT DATE: 201605
